FAERS Safety Report 21132713 (Version 1)
Quarter: 2022Q3

REPORT INFORMATION
  Report Type: Spontaneous
  Country: US (occurrence: US)
  Receive Date: 20220726
  Receipt Date: 20220726
  Transmission Date: 20221027
  Serious: No
  Sender: FDA-Public Use
  Company Number: US-PFIZER INC-202200999945

PATIENT
  Age: 41 Year
  Sex: Female

DRUGS (5)
  1. PAXLOVID [Suspect]
     Active Substance: NIRMATRELVIR\RITONAVIR
     Indication: COVID-19 treatment
     Dosage: UNK
     Dates: start: 20220706, end: 20220711
  2. LEXAPRO [Concomitant]
     Active Substance: ESCITALOPRAM OXALATE
     Dosage: UNK
  3. ACETAMINOPHEN [Concomitant]
     Active Substance: ACETAMINOPHEN
     Dosage: UNK
  4. VICKS NYQUIL [Concomitant]
     Active Substance: ACETAMINOPHEN\DEXTROMETHORPHAN HYDROBROMIDE\DOXYLAMINE SUCCINATE
     Dosage: UNK
  5. VICKS DAYQUIL [Concomitant]
     Active Substance: DEXTROMETHORPHAN HYDROBROMIDE\GUAIFENESIN
     Dosage: UNK

REACTIONS (3)
  - Dysgeusia [Unknown]
  - COVID-19 [Recovering/Resolving]
  - Disease recurrence [Recovering/Resolving]

NARRATIVE: CASE EVENT DATE: 20220721
